FAERS Safety Report 7820163 (Version 5)
Quarter: 2013Q3

REPORT INFORMATION
  Report Type: Spontaneous
  Country: US (occurrence: US)
  Receive Date: 20110221
  Receipt Date: 20130813
  Transmission Date: 20140515
  Serious: Yes (Hospitalization, Other)
  Sender: FDA-Public Use
  Company Number: US-ROCHE-736889

PATIENT
  Age: 32 Year
  Sex: Male
  Weight: 74.8 kg

DRUGS (2)
  1. ACCUTANE [Suspect]
     Indication: ACNE CYSTIC
     Route: 065
     Dates: start: 199608, end: 199609
  2. ACCUTANE [Suspect]
     Route: 065

REACTIONS (9)
  - Crohn^s disease [Unknown]
  - Small intestinal obstruction [Unknown]
  - Gastrointestinal injury [Unknown]
  - Abscess [Unknown]
  - Intestinal obstruction [Unknown]
  - Anal fistula [Unknown]
  - Large intestine polyp [Unknown]
  - Depression [Unknown]
  - Pelvic abscess [Unknown]
